FAERS Safety Report 10884326 (Version 1)
Quarter: 2015Q1

REPORT INFORMATION
  Report Type: Spontaneous
  Country: US (occurrence: None)
  Receive Date: 20150227
  Receipt Date: 20150227
  Transmission Date: 20150721
  Serious: Yes (Other)
  Sender: FDA-Public Use
  Company Number: BL-2014-009041

PATIENT
  Sex: Female

DRUGS (1)
  1. SHOWER TO  SHOWER POWDER (POWDER) [Suspect]
     Active Substance: TALC
     Indication: PRODUCT USED FOR UNKNOWN INDICATION
     Dates: start: 1973, end: 1994

REACTIONS (1)
  - Ovarian cancer [None]

NARRATIVE: CASE EVENT DATE: 20060309
